FAERS Safety Report 4388308-X (Version None)
Quarter: 2004Q2

REPORT INFORMATION
  Report Type: 
  Country: None (occurrence: None)
  Receive Date: 20040629
  Receipt Date: 20040618
  Transmission Date: 20050107
  Serious: No
  Sender: FDA-Public Use
  Company Number: 2004CG01198

PATIENT
  Age: 23 Year
  Sex: Female

DRUGS (2)
  1. CRESTOR [Suspect]
     Indication: HYPERCHOLESTEROLAEMIA
     Dosage: 10 MG DAILY PO
     Route: 048
     Dates: start: 20040501, end: 20040614
  2. CRESTOR [Suspect]
     Indication: HYPERCHOLESTEROLAEMIA
     Dosage: 20 MG BID PO
     Route: 048
     Dates: start: 20040615, end: 20040617

REACTIONS (5)
  - HEADACHE [None]
  - HYPERHIDROSIS [None]
  - MALAISE [None]
  - NAUSEA [None]
  - SYNCOPE VASOVAGAL [None]
